FAERS Safety Report 7468936-5 (Version None)
Quarter: 2011Q2

REPORT INFORMATION
  Report Type: 
  Country: None (occurrence: None)
  Receive Date: 20110428
  Receipt Date: 20110413
  Transmission Date: 20111010
  Serious: Yes (Life-Threatening)
  Sender: FDA-Public Use
  Company Number: 1000019225

PATIENT
  Age: 61 Year
  Sex: Male
  Weight: 80 kg

DRUGS (6)
  1. NOVOPULMON (BUDESONIDE) (BUDESONIDE) [Concomitant]
  2. FORMOTOP (FORMOTEROL FURMARATE) (FORMOTEROL FUMARATE) [Concomitant]
  3. SPIRIVA (TIOTROPIUM BROMDE) (TIOTROPIUM BROMIDE) [Concomitant]
  4. BEROKE (FENOTEROL) (FENOTEROL) [Concomitant]
  5. BEROTEC (FENOTEROL HYDROBROMIDE) (FENOTEROL HYDROBROMIDE) [Concomitant]
  6. ROFLUMILAST (ROFLUMILAST) [Suspect]
     Indication: CHRONIC OBSTRUCTIVE PULMONARY DISEASE
     Dosage: 500 MCG, ORAL
     Route: 048
     Dates: start: 20110126, end: 20110307

REACTIONS (5)
  - CONGESTIVE CARDIOMYOPATHY [None]
  - DYSPNOEA EXERTIONAL [None]
  - ARTERIOSCLEROSIS CORONARY ARTERY [None]
  - MYOCARDIAL ISCHAEMIA [None]
  - CARDIAC FAILURE [None]
